FAERS Safety Report 16058646 (Version 2)
Quarter: 2019Q2

REPORT INFORMATION
  Report Type: Spontaneous
  Country: JP (occurrence: JP)
  Receive Date: 20190311
  Receipt Date: 20190415
  Transmission Date: 20190711
  Serious: No
  Sender: FDA-Public Use
  Company Number: JP-JNJFOC-20190311716

PATIENT
  Age: 54 Year
  Sex: Female

DRUGS (5)
  1. AZILVA [Concomitant]
     Active Substance: AZILSARTAN KAMEDOXOMIL
     Route: 065
  2. LANSOPRAZOLE. [Concomitant]
     Active Substance: LANSOPRAZOLE
     Route: 065
  3. NATRIX [Concomitant]
     Active Substance: INDAPAMIDE
     Route: 065
  4. CANAGLU [Suspect]
     Active Substance: CANAGLIFLOZIN
     Indication: PRODUCT USED FOR UNKNOWN INDICATION
     Route: 048
  5. SHAKUYAKUKANZOTO [Concomitant]
     Active Substance: HERBALS
     Route: 048

REACTIONS (1)
  - Muscle spasms [Recovered/Resolved]
